FAERS Safety Report 19724443 (Version 2)
Quarter: 2023Q2

REPORT INFORMATION
  Report Type: Report from Study
  Country: US (occurrence: None)
  Receive Date: 20210819
  Receipt Date: 20230425
  Transmission Date: 20230721
  Serious: Yes (Hospitalization)
  Sender: FDA-Public Use
  Company Number: US-ROCHE-2889077

PATIENT
  Age: 7 Year
  Sex: Male
  Weight: 42.9 kg

DRUGS (1)
  1. ENTRECTINIB [Suspect]
     Active Substance: ENTRECTINIB
     Indication: Metastatic neoplasm
     Dosage: ON 24/MAY/2021, LAST DOSE PRIOR OF SUSPECT DRUG WAS ADMINISTERED PRIOR TO ADVERSE EVENT
     Route: 048
     Dates: start: 20200608

REACTIONS (1)
  - Joint effusion [Recovered/Resolved]

NARRATIVE: CASE EVENT DATE: 20210524
